FAERS Safety Report 12462496 (Version 2)
Quarter: 2016Q3

REPORT INFORMATION
  Report Type: Report from Study
  Country: EC (occurrence: EC)
  Receive Date: 20160614
  Receipt Date: 20160705
  Transmission Date: 20161109
  Serious: Yes (Death)
  Sender: FDA-Public Use
  Company Number: EC-ROCHE-1775213

PATIENT
  Age: 82 Year
  Sex: Male

DRUGS (1)
  1. MABTHERA [Suspect]
     Active Substance: RITUXIMAB
     Indication: NON-HODGKIN^S LYMPHOMA
     Route: 042
     Dates: start: 201603, end: 201605

REACTIONS (2)
  - Cardio-respiratory arrest [Fatal]
  - Pneumonia [Fatal]

NARRATIVE: CASE EVENT DATE: 20160601
